FAERS Safety Report 24270900 (Version 1)
Quarter: 2024Q3

REPORT INFORMATION
  Report Type: Spontaneous
  Country: JP (occurrence: JP)
  Receive Date: 20240831
  Receipt Date: 20240831
  Transmission Date: 20241016
  Serious: Yes (Life-Threatening, Hospitalization, Other)
  Sender: MACLEODS
  Company Number: JP-MLMSERVICE-20240814-PI156937-00328-2

PATIENT

DRUGS (1)
  1. VALSARTAN [Suspect]
     Active Substance: VALSARTAN
     Indication: Product used for unknown indication
     Dosage: 22 VALSARTAN 40 MG TABLETS
     Route: 065

REACTIONS (7)
  - Sedation [Recovered/Resolved]
  - Haemorrhage in pregnancy [Recovered/Resolved]
  - Agitation [Recovered/Resolved]
  - Intentional overdose [Recovered/Resolved]
  - Oligohydramnios [Recovered/Resolved]
  - Prescription drug used without a prescription [Recovered/Resolved]
  - Maternal exposure during pregnancy [Unknown]
